FAERS Safety Report 7751162-X (Version None)
Quarter: 2011Q3

REPORT INFORMATION
  Report Type: 
  Country: None (occurrence: None)
  Receive Date: 20110912
  Receipt Date: 20110826
  Transmission Date: 20111222
  Serious: Yes (Hospitalization, Other)
  Sender: FDA-Public Use
  Company Number: 2011MA012727

PATIENT
  Age: 64 Year
  Sex: Male
  Weight: 83.4619 kg

DRUGS (24)
  1. BACTRIM DS [Concomitant]
  2. CIPROFLOXACIN [Concomitant]
  3. DARVOCET-N 100 [Concomitant]
  4. LANTUS [Concomitant]
  5. LOPRESSOR [Concomitant]
  6. PLAVIX [Concomitant]
  7. INSULIN [Concomitant]
  8. DIGOXIN [Suspect]
     Indication: HEART RATE IRREGULAR
     Dosage: 250 MG; QD, PO
     Route: 048
     Dates: start: 19970224, end: 20090528
  9. ALTACE [Concomitant]
  10. ASPIRIN [Concomitant]
  11. HUMALOG [Concomitant]
  12. DUONEB [Concomitant]
  13. LEVIBID [Concomitant]
  14. LIPITOR [Concomitant]
  15. NITROGLYCERIN [Concomitant]
  16. TYLENOL RX [Concomitant]
  17. LORTAB 5/599 [Concomitant]
  18. ZITHROMAX [Concomitant]
  19. FOLIC ACID [Concomitant]
  20. LEXAPRO [Concomitant]
  21. ERYTHROMYCIN [Concomitant]
  22. PEPCID [Concomitant]
  23. HYOSCYAMINE [Concomitant]
  24. SYNTHROID [Concomitant]

REACTIONS (42)
  - CONVULSION [None]
  - ELECTRIC SHOCK [None]
  - BLOOD SODIUM DECREASED [None]
  - BLOOD ALBUMIN DECREASED [None]
  - MULTIPLE INJURIES [None]
  - ANAEMIA [None]
  - ULCER HAEMORRHAGE [None]
  - CHEST PAIN [None]
  - DEPRESSION [None]
  - CHRONIC OBSTRUCTIVE PULMONARY DISEASE [None]
  - HYPERTENSION [None]
  - PAIN [None]
  - ILL-DEFINED DISORDER [None]
  - ARTHRITIS [None]
  - MUSCLE STRAIN [None]
  - MUSCULOSKELETAL CHEST PAIN [None]
  - ANXIETY [None]
  - SPINAL FUSION SURGERY [None]
  - NAUSEA [None]
  - SUPRAVENTRICULAR TACHYCARDIA [None]
  - ASTHENIA [None]
  - FALL [None]
  - LIPASE DECREASED [None]
  - BRONCHITIS [None]
  - DIABETES MELLITUS [None]
  - BACK PAIN [None]
  - BREAST CANCER [None]
  - CORONARY ARTERY DISEASE [None]
  - ECONOMIC PROBLEM [None]
  - SUPRAVENTRICULAR EXTRASYSTOLES [None]
  - PLEURISY [None]
  - BLOOD GLUCOSE INCREASED [None]
  - CARDIAC DISORDER [None]
  - EMOTIONAL DISORDER [None]
  - ARRHYTHMIA [None]
  - CONTUSION [None]
  - NIGHTMARE [None]
  - ELECTROCARDIOGRAM ST-T CHANGE [None]
  - PERFORATED ULCER [None]
  - BLOOD CALCIUM DECREASED [None]
  - ALANINE AMINOTRANSFERASE DECREASED [None]
  - BLOOD ALKALINE PHOSPHATASE INCREASED [None]
